FAERS Safety Report 7519001-X (Version None)
Quarter: 2011Q2

REPORT INFORMATION
  Report Type: 
  Country: None (occurrence: None)
  Receive Date: 20110523
  Receipt Date: 20110509
  Transmission Date: 20111010
  Serious: Yes (Hospitalization)
  Sender: FDA-Public Use
  Company Number: 2011MA005705

PATIENT
  Age: 14 Year
  Sex: Male

DRUGS (1)
  1. PROPYLTHIOURACIL TABLETS, 50MG (PUREPAC) (PROPYLTHIOURACIL) [Suspect]
     Indication: HYPERTHYROIDISM

REACTIONS (9)
  - LEUKOPENIA [None]
  - THROMBOCYTOPENIA [None]
  - ACTIVATED PARTIAL THROMBOPLASTIN TIME ABNORMAL [None]
  - LEUKOCYTOCLASTIC VASCULITIS [None]
  - TACHYCARDIA [None]
  - PROTHROMBIN TIME ABNORMAL [None]
  - HYPOALBUMINAEMIA [None]
  - TREATMENT NONCOMPLIANCE [None]
  - ANAEMIA [None]
